FAERS Safety Report 9840526 (Version 1)
Quarter: 2014Q1

REPORT INFORMATION
  Report Type: Spontaneous
  Country: US (occurrence: US)
  Receive Date: 20140124
  Receipt Date: 20140124
  Transmission Date: 20141002
  Serious: Yes (Other)
  Sender: FDA-Public Use
  Company Number: US-PFIZER INC-2014021918

PATIENT
  Sex: Female

DRUGS (4)
  1. LYRICA [Suspect]
     Indication: NEUROPATHY PERIPHERAL
     Dosage: 150 MG, 2X/DAY
     Dates: start: 2013
  2. LYRICA [Suspect]
     Indication: RADICULAR PAIN
     Dosage: 150 MG, 3X/DAY
  3. LYRICA [Suspect]
     Indication: POST LAMINECTOMY SYNDROME
     Dosage: 150 MG, DAILY
  4. METFORMIN [Concomitant]
     Indication: DIABETES MELLITUS
     Dosage: UNK

REACTIONS (2)
  - Sedation [Recovered/Resolved]
  - Hallucination [Recovered/Resolved]
